FAERS Safety Report 4694528-7 (Version None)
Quarter: 2005Q2

REPORT INFORMATION
  Report Type: 
  Country: None (occurrence: None)
  Receive Date: 20050620
  Receipt Date: 20050608
  Transmission Date: 20051028
  Serious: Yes (Death)
  Sender: FDA-Public Use
  Company Number: JP-BRISTOL-MYERS SQUIBB COMPANY-12999454

PATIENT
  Age: 69 Year
  Sex: Male

DRUGS (6)
  1. BRIPLATIN [Suspect]
     Indication: GASTRIC CANCER
     Route: 041
     Dates: start: 20020708, end: 20020708
  2. IRINOTECAN HCL [Suspect]
     Indication: GASTRIC CANCER
     Route: 041
     Dates: start: 20020708, end: 20020708
  3. CATABON [Concomitant]
     Route: 042
     Dates: start: 20020708, end: 20020717
  4. DOBUTREX [Concomitant]
     Route: 042
     Dates: start: 20020713, end: 20020717
  5. LOPEMIN [Concomitant]
     Route: 048
     Dates: start: 20020710, end: 20020712
  6. LASIX [Concomitant]
     Route: 042
     Dates: start: 20020709, end: 20020718

REACTIONS (5)
  - ACUTE RESPIRATORY FAILURE [None]
  - CLOSTRIDIUM COLITIS [None]
  - DISSEMINATED INTRAVASCULAR COAGULATION [None]
  - NEUTROPENIA [None]
  - SHOCK [None]
